FAERS Safety Report 5051338-9 (Version None)
Quarter: 2006Q2

REPORT INFORMATION
  Report Type: 
  Country: None (occurrence: None)
  Receive Date: 20060610
  Receipt Date: 20060625
  Transmission Date: 20061013
  Serious: Yes (Hospitalization)
  Sender: FDA-Public Use
  Company Number: T200600732

PATIENT
  Sex: Male

DRUGS (1)
  1. HYDROCODONE BITARTRATE/APAP (HYDROCODONE  BITARTRATE, ACETAMINOPHEN) T [Suspect]
     Dosage: 5/500MG, ORAL
     Route: 048

REACTIONS (1)
  - LARGE INTESTINE PERFORATION [None]
